FAERS Safety Report 6045466-9 (Version None)
Quarter: 2009Q1

REPORT INFORMATION
  Report Type: 
  Country: None (occurrence: None)
  Receive Date: 20090121
  Receipt Date: 20090116
  Transmission Date: 20090719
  Serious: Yes (Other)
  Sender: FDA-Public Use
  Company Number: B0555242A

PATIENT
  Sex: Female

DRUGS (1)
  1. CIGANON CQ1 [Suspect]
     Dosage: 1PAT PER DAY
     Route: 062
     Dates: start: 20090113, end: 20090114

REACTIONS (4)
  - EYE DISORDER [None]
  - VISION BLURRED [None]
  - VISUAL ACUITY REDUCED [None]
  - VISUAL IMPAIRMENT [None]
